FAERS Safety Report 21043447 (Version 3)
Quarter: 2022Q3

REPORT INFORMATION
  Report Type: Report from Study
  Country: US (occurrence: US)
  Receive Date: 20220705
  Receipt Date: 20220912
  Transmission Date: 20221027
  Serious: Yes (Hospitalization, Other)
  Sender: FDA-Public Use
  Company Number: US-NOVARTISPH-NVSC2022US149367

PATIENT
  Sex: Female

DRUGS (1)
  1. ADAKVEO [Suspect]
     Active Substance: CRIZANLIZUMAB-TMCA
     Indication: Product used for unknown indication
     Dosage: UNK, QMO
     Route: 065

REACTIONS (7)
  - Haemoglobin decreased [Recovering/Resolving]
  - Sickle cell disease [Recovering/Resolving]
  - Atrial fibrillation [Unknown]
  - Headache [Unknown]
  - Atrial flutter [Unknown]
  - Osteoporosis [Unknown]
  - Drug ineffective [Unknown]
